FAERS Safety Report 18952150 (Version 1)
Quarter: 2021Q1

REPORT INFORMATION
  Report Type: Spontaneous
  Country: NL (occurrence: NL)
  Receive Date: 20210301
  Receipt Date: 20210301
  Transmission Date: 20210420
  Serious: Yes (Disabling, Other)
  Sender: FDA-Public Use
  Company Number: NL-AUROBINDO-AUR-APL-2021-008271

PATIENT
  Sex: Female
  Weight: 67 kg

DRUGS (3)
  1. RISPERIDONE. [Concomitant]
     Active Substance: RISPERIDONE
     Indication: PRODUCT USED FOR UNKNOWN INDICATION
     Dosage: UNK
     Route: 065
  2. CITALOPRAM [Concomitant]
     Active Substance: CITALOPRAM HYDROBROMIDE
     Indication: PRODUCT USED FOR UNKNOWN INDICATION
     Dosage: UNK
     Route: 065
  3. LEVONORGESTREL+ETHINYLESTRADIOL 150/30 ?G FILM COATED TABLET [Suspect]
     Active Substance: ETHINYL ESTRADIOL\LEVONORGESTREL
     Indication: CONTRACEPTION
     Dosage: 1 DOSAGE FORM, ONCE A DAY, (1X PER DAY 1 PIECE, AFTER 3 WEEKS OF STOP WEEK)
     Route: 065
     Dates: start: 2014, end: 20210104

REACTIONS (2)
  - Hypothyroidism [Not Recovered/Not Resolved]
  - Cortisol increased [Not Recovered/Not Resolved]
